FAERS Safety Report 25289880 (Version 1)
Quarter: 2025Q2

REPORT INFORMATION
  Report Type: Spontaneous
  Country: US (occurrence: None)
  Receive Date: 20250509
  Receipt Date: 20250509
  Transmission Date: 20250716
  Serious: No
  Sender: INCYTE
  Company Number: US-INCYTE CORPORATION-2025IN004690

PATIENT
  Age: 76 Year

DRUGS (1)
  1. JAKAFI [Suspect]
     Active Substance: RUXOLITINIB
     Indication: Myelofibrosis

REACTIONS (1)
  - Blood pressure abnormal [Unknown]
